FAERS Safety Report 5869970-9 (Version None)
Quarter: 2008Q3

REPORT INFORMATION
  Report Type: 
  Country: None (occurrence: None)
  Receive Date: 20080902
  Receipt Date: 20080821
  Transmission Date: 20090109
  Serious: Yes (Hospitalization)
  Sender: FDA-Public Use
  Company Number: 032660

PATIENT
  Age: 32 Year
  Sex: Female
  Weight: 52.2 kg

DRUGS (2)
  1. SEASONIQUE [Suspect]
     Indication: DYSMENORRHOEA
     Dosage: 1 TABLET, QD, ORAL
     Route: 048
     Dates: start: 20071001, end: 20071201
  2. COUMADIN [Suspect]
     Dosage: ORAL
     Route: 048

REACTIONS (4)
  - COUGH [None]
  - HAEMORRHAGIC OVARIAN CYST [None]
  - OVARIAN CYST [None]
  - PULMONARY EMBOLISM [None]
